FAERS Safety Report 4934247-2 (Version None)
Quarter: 2006Q1

REPORT INFORMATION
  Report Type: 
  Country: None (occurrence: None)
  Receive Date: 20060303
  Receipt Date: 20060220
  Transmission Date: 20060701
  Serious: Yes (Hospitalization)
  Sender: FDA-Public Use
  Company Number: 2006026133

PATIENT
  Age: 64 Year
  Sex: Female

DRUGS (4)
  1. UNASYN [Suspect]
     Indication: PNEUMONIA
     Dosage: 3 GRAM (1.5 GRAM, 2 IN 1 D), INTRAVENOUS
     Route: 042
     Dates: start: 20060112, end: 20060116
  2. MEROPEN (MEROPENEM) [Suspect]
     Indication: PNEUMONIA
     Dosage: 1 GRAM (500 MG, 2 IN 1 D), INTRAVENOUS
     Route: 042
     Dates: start: 20060116, end: 20060118
  3. HABEKACIN (ARBEKACIN) [Suspect]
     Indication: PNEUMONIA
     Dosage: 200 MG (100 MG, 2 IN 1 D), INTRAVENOUS
     Route: 042
     Dates: start: 20060118, end: 20060119
  4. LASIX [Concomitant]

REACTIONS (6)
  - ALANINE AMINOTRANSFERASE INCREASED [None]
  - ASPARTATE AMINOTRANSFERASE INCREASED [None]
  - BLOOD BILIRUBIN INCREASED [None]
  - BLOOD LACTATE DEHYDROGENASE INCREASED [None]
  - HEPATIC FUNCTION ABNORMAL [None]
  - PYREXIA [None]
